FAERS Safety Report 6128382-3 (Version None)
Quarter: 2009Q1

REPORT INFORMATION
  Report Type: 
  Country: None (occurrence: None)
  Receive Date: 20090323
  Receipt Date: 20080617
  Transmission Date: 20090719
  Serious: No
  Sender: FDA-Public Use
  Company Number: US-ABBOTT-08P-163-0457887-00

PATIENT
  Sex: Female
  Weight: 105.33 kg

DRUGS (10)
  1. ERYTHROMYCIN ETHYLSUCCINATE [Suspect]
     Indication: IMPAIRED GASTRIC EMPTYING
     Dosage: 200MG/5ML - 1TEASPOON BEFORE EACH MEAL
     Route: 048
     Dates: start: 20080501
  2. PRINZIDE [Concomitant]
     Indication: BLOOD PRESSURE
     Route: 048
     Dates: start: 20060101
  3. M.V.I. [Concomitant]
     Indication: MEDICAL DIET
     Route: 048
  4. PARACETAMOL [Concomitant]
     Indication: PAIN
     Route: 048
  5. IBUPROFEN TABLETS [Concomitant]
     Indication: ARTHRITIS
     Route: 048
  6. ESOMEPRAZOLE MAGNESIUM [Concomitant]
     Indication: GASTROOESOPHAGEAL REFLUX DISEASE
     Route: 048
     Dates: start: 20071101
  7. ESOMEPRAZOLE MAGNESIUM [Concomitant]
     Indication: EARLY SATIETY
  8. ESOMEPRAZOLE MAGNESIUM [Concomitant]
     Indication: ABDOMINAL DISTENSION
  9. ESOMEPRAZOLE MAGNESIUM [Concomitant]
     Indication: IMPAIRED GASTRIC EMPTYING
  10. RANITIDINE [Concomitant]
     Indication: GASTROOESOPHAGEAL REFLUX DISEASE
     Route: 048
     Dates: start: 20080101

REACTIONS (2)
  - BLOOD GLUCOSE INCREASED [None]
  - TREMOR [None]
